FAERS Safety Report 20126285 (Version 1)
Quarter: 2021Q4

REPORT INFORMATION
  Report Type: Report from Study
  Country: JP (occurrence: JP)
  Receive Date: 20211129
  Receipt Date: 20211129
  Transmission Date: 20220303
  Serious: Yes (Hospitalization)
  Sender: FDA-Public Use
  Company Number: JP-BAYER-2021A252986

PATIENT
  Age: 40 Year
  Sex: Male
  Weight: 55.5 kg

DRUGS (1)
  1. REGORAFENIB [Suspect]
     Active Substance: REGORAFENIB
     Indication: Colorectal cancer

REACTIONS (4)
  - Alanine aminotransferase abnormal [None]
  - Aspartate aminotransferase abnormal [None]
  - Platelet count decreased [None]
  - Blood bilirubin increased [None]

NARRATIVE: CASE EVENT DATE: 20211117
